FAERS Safety Report 11509992 (Version 1)
Quarter: 2015Q3

REPORT INFORMATION
  Report Type: Spontaneous
  Country: US (occurrence: US)
  Receive Date: 20150915
  Receipt Date: 20150915
  Transmission Date: 20151125
  Serious: No
  Sender: FDA-Public Use
  Company Number: US-JNJFOC-20150821279

PATIENT
  Age: 37 Year
  Sex: Female
  Weight: 56.7 kg

DRUGS (7)
  1. MENS ROGAINE EXTRA STRENGTH [Suspect]
     Active Substance: MINOXIDIL
     Indication: ALOPECIA
     Dosage: HALF CAPFUL
     Route: 061
     Dates: end: 20150820
  2. MENS ROGAINE EXTRA STRENGTH [Suspect]
     Active Substance: MINOXIDIL
     Indication: ALOPECIA
     Dosage: HALF CAPFUL, FOR YEAR AND A HALF
     Route: 061
  3. VITAMIN D [Concomitant]
     Active Substance: CHOLECALCIFEROL
     Indication: ROUTINE HEALTH MAINTENANCE
     Dosage: 4 MONTHS
     Route: 065
  4. OMEGA FISH OILS [Concomitant]
     Indication: ROUTINE HEALTH MAINTENANCE
     Dosage: 10-15 YEARS
     Route: 065
  5. MULTIVITAMINS [Concomitant]
     Active Substance: VITAMINS
     Indication: GENERAL PHYSICAL CONDITION
     Dosage: 10-15 YEARS
     Route: 065
  6. BIOTIN [Concomitant]
     Active Substance: BIOTIN
     Indication: ROUTINE HEALTH MAINTENANCE
     Dosage: 10-15 YEARS
     Route: 065
  7. CALCIUM [Concomitant]
     Active Substance: CALCIUM
     Indication: ROUTINE HEALTH MAINTENANCE
     Dosage: 10-15 YEARS
     Route: 065

REACTIONS (5)
  - Heart rate irregular [Recovering/Resolving]
  - Dizziness [Recovering/Resolving]
  - Hair texture abnormal [Recovering/Resolving]
  - Wrong patient received medication [Unknown]
  - Skin irritation [Recovering/Resolving]
